FAERS Safety Report 4416202-4 (Version None)
Quarter: 2004Q3

REPORT INFORMATION
  Report Type: 
  Country: None (occurrence: None)
  Receive Date: 20040805
  Receipt Date: 20010713
  Transmission Date: 20050211
  Serious: Yes (Other)
  Sender: FDA-Public Use
  Company Number: PHHO2001BR10788

PATIENT
  Age: 75 Year
  Sex: Female

DRUGS (1)
  1. DIOVAN [Suspect]
     Dosage: QD

REACTIONS (3)
  - DIARRHOEA [None]
  - NAUSEA [None]
  - ULCER [None]
